FAERS Safety Report 14114038 (Version 3)
Quarter: 2019Q1

REPORT INFORMATION
  Report Type: Report from Study
  Country: DE (occurrence: DE)
  Receive Date: 20171023
  Receipt Date: 20190308
  Transmission Date: 20190417
  Serious: Yes (Hospitalization)
  Sender: FDA-Public Use
  Company Number: PHHY2017DE153756

PATIENT

DRUGS (1)
  1. COSENTYX [Suspect]
     Active Substance: SECUKINUMAB
     Indication: PSORIASIS
     Dosage: 300 MG, UNK
     Route: 058
     Dates: start: 20151101, end: 20170914

REACTIONS (3)
  - Papillary thyroid cancer [Not Recovered/Not Resolved]
  - Dysphonia [Recovered/Resolved with Sequelae]
  - Nodule [Recovered/Resolved with Sequelae]

NARRATIVE: CASE EVENT DATE: 20170507
